FAERS Safety Report 8507974-8 (Version None)
Quarter: 2012Q3

REPORT INFORMATION
  Report Type: 
  Country: None (occurrence: None)
  Receive Date: 20120713
  Receipt Date: 20120702
  Transmission Date: 20120928
  Serious: Yes (Hospitalization)
  Sender: FDA-Public Use
  Company Number: US-JNJFOC-20120404025

PATIENT
  Sex: Male
  Weight: 86.2 kg

DRUGS (11)
  1. PROBIOTICS [Concomitant]
  2. IMODIUM [Concomitant]
  3. ANTIBIOTICS FOR IBD [Concomitant]
     Indication: INFLAMMATORY BOWEL DISEASE
  4. RIFAXIMIN [Concomitant]
  5. CLARITIN [Concomitant]
  6. COMBIVENT [Concomitant]
  7. OMEPRAZOLE [Concomitant]
  8. INFLIXIMAB, RECOMBINANT [Suspect]
     Indication: INFLAMMATORY BOWEL DISEASE
     Route: 042
     Dates: start: 20070324, end: 20071015
  9. TACROLIMUS [Concomitant]
  10. SINGULAIR [Concomitant]
  11. LEXAPRO [Concomitant]

REACTIONS (2)
  - SYNCOPE [None]
  - DEHYDRATION [None]
